FAERS Safety Report 13851850 (Version 2)
Quarter: 2017Q4

REPORT INFORMATION
  Report Type: Report from Study
  Country: FR (occurrence: FR)
  Receive Date: 20170810
  Receipt Date: 20171023
  Transmission Date: 20180320
  Serious: Yes (Life-Threatening, Hospitalization)
  Sender: FDA-Public Use
  Company Number: FR-ROCHE-1974593

PATIENT
  Age: 14 Year
  Sex: Male

DRUGS (14)
  1. FILGRASTIM [Concomitant]
     Active Substance: FILGRASTIM
     Route: 042
     Dates: start: 20170429
  2. DOXORUBICINE [Suspect]
     Active Substance: DOXORUBICIN
     Indication: BURKITT^S LYMPHOMA
     Route: 042
     Dates: start: 20170417
  3. MORPHINE [Concomitant]
     Active Substance: MORPHINE
     Route: 042
     Dates: start: 20170421, end: 20170504
  4. RITUXIMAB. [Suspect]
     Active Substance: RITUXIMAB
     Indication: BURKITT^S LYMPHOMA
     Route: 042
     Dates: start: 20170413
  5. VINCRISTINE [Suspect]
     Active Substance: VINCRISTINE
     Indication: BURKITT^S LYMPHOMA
     Route: 042
     Dates: start: 20170415
  6. METHOTREXATE. [Suspect]
     Active Substance: METHOTREXATE
     Route: 042
     Dates: start: 20170415
  7. SPASFON (FRANCE) [Concomitant]
     Active Substance: PHLOROGLUCINOL\1,3,5-TRIMETHOXYBENZENE
     Route: 042
     Dates: start: 20170424, end: 20170505
  8. PREDNISOLONE. [Suspect]
     Active Substance: PREDNISOLONE
     Indication: BURKITT^S LYMPHOMA
     Route: 042
     Dates: start: 20170419
  9. CYCLOPHOSPHAMIDE. [Suspect]
     Active Substance: CYCLOPHOSPHAMIDE
     Indication: BURKITT^S LYMPHOMA
     Route: 042
     Dates: start: 20170416
  10. ACUPAN [Concomitant]
     Active Substance: NEFOPAM HYDROCHLORIDE
     Route: 042
     Dates: start: 20170421, end: 20170505
  11. NOREPINEPHRINE. [Concomitant]
     Active Substance: NOREPINEPHRINE
     Route: 042
     Dates: start: 20170426, end: 20170428
  12. METHOTREXATE. [Suspect]
     Active Substance: METHOTREXATE
     Indication: BURKITT^S LYMPHOMA
     Dosage: 20/APR/2017
     Route: 042
     Dates: start: 20170416
  13. CYTARABINE. [Suspect]
     Active Substance: CYTARABINE
     Indication: BURKITT^S LYMPHOMA
     Dosage: 20/APR/2017
     Route: 042
     Dates: start: 20170416
  14. HYDROCORTISONE. [Suspect]
     Active Substance: HYDROCORTISONE
     Indication: BURKITT^S LYMPHOMA
     Route: 042
     Dates: start: 20170416

REACTIONS (2)
  - Mucosal inflammation [Recovered/Resolved]
  - Escherichia sepsis [Recovered/Resolved]

NARRATIVE: CASE EVENT DATE: 20170426
